FAERS Safety Report 19850144 (Version 1)
Quarter: 2021Q3

REPORT INFORMATION
  Report Type: Spontaneous
  Country: PT (occurrence: PT)
  Receive Date: 20210918
  Receipt Date: 20210918
  Transmission Date: 20211014
  Serious: Yes (Other)
  Sender: FDA-Public Use
  Company Number: PT-TAKEDA-PT202033444

PATIENT
  Age: 70 Year
  Sex: Female

DRUGS (3)
  1. RITUXIMAB. [Concomitant]
     Active Substance: RITUXIMAB
     Indication: GRANULOMATOSIS WITH POLYANGIITIS
     Route: 065
  2. HUMAN NORMAL IMMUNOGLOBULIN [Suspect]
     Active Substance: HUMAN IMMUNOGLOBULIN G
     Indication: MONONEUROPATHY MULTIPLEX
     Dosage: 1 DOSAGE FORM, 1X A MONTH
     Route: 042
  3. HUMAN NORMAL IMMUNOGLOBULIN [Suspect]
     Active Substance: HUMAN IMMUNOGLOBULIN G
     Indication: GRANULOMATOSIS WITH POLYANGIITIS

REACTIONS (4)
  - Hepatitis B core antibody positive [Recovered/Resolved]
  - Off label use [Unknown]
  - Immunisation [Recovered/Resolved]
  - Hepatitis B surface antibody positive [Recovered/Resolved]
